FAERS Safety Report 9293439 (Version 2)
Quarter: 2013Q4

REPORT INFORMATION
  Report Type: Spontaneous
  Country: US (occurrence: US)
  Receive Date: 20130516
  Receipt Date: 20131106
  Transmission Date: 20140711
  Serious: Yes (Hospitalization)
  Sender: FDA-Public Use
  Company Number: US-B.I. PHARMACEUTICALS,INC./RIDGEFIELD-2013-BI-13777BP

PATIENT
  Age: 88 Year
  Sex: Male
  Weight: 81.65 kg

DRUGS (6)
  1. PRADAXA [Suspect]
     Indication: ANTICOAGULANT THERAPY
     Dosage: 300 MG
     Route: 048
     Dates: start: 20111031, end: 20120424
  2. PRADAXA [Suspect]
     Indication: ATRIAL FIBRILLATION
  3. LASIX [Concomitant]
     Dosage: 40 MG
  4. POTASSIUM [Concomitant]
     Dosage: 20 MEQ
  5. TAMSULOSIN [Concomitant]
     Dosage: 0.5 MG
  6. METOPROLOL [Concomitant]
     Dosage: 50 MG

REACTIONS (3)
  - Lower gastrointestinal haemorrhage [Recovered/Resolved]
  - Haemorrhagic anaemia [Unknown]
  - Rectal haemorrhage [Recovered/Resolved]
